FAERS Safety Report 9019308 (Version 2)
Quarter: 2013Q1

REPORT INFORMATION
  Report Type: Spontaneous
  Country: FI (occurrence: FI)
  Receive Date: 20130118
  Receipt Date: 20130206
  Transmission Date: 20140127
  Serious: Yes (Life-Threatening, Hospitalization)
  Sender: FDA-Public Use
  Company Number: FI-ABBOTT-13P-055-1038106-00

PATIENT
  Sex: 0

DRUGS (1)
  1. VALPROATE SALT NOT SPECIFIED [Suspect]
     Indication: PRODUCT USED FOR UNKNOWN INDICATION
     Route: 065

REACTIONS (3)
  - Liver injury [Unknown]
  - Liver injury [None]
  - Liver transplant [None]
